FAERS Safety Report 17079966 (Version 1)
Quarter: 2019Q4

REPORT INFORMATION
  Report Type: Spontaneous
  Country: GB (occurrence: GB)
  Receive Date: 20191127
  Receipt Date: 20191127
  Transmission Date: 20200122
  Serious: Yes (Disabling, Other)
  Sender: FDA-Public Use
  Company Number: GB-TEVA-2018-GB-982947

PATIENT
  Age: 56 Year
  Sex: Female
  Weight: 58.96 kg

DRUGS (2)
  1. PRAMIPEXOLE. [Suspect]
     Active Substance: PRAMIPEXOLE
     Indication: RESTLESS LEGS SYNDROME
     Route: 048
     Dates: start: 2016, end: 201806
  2. FLUOXETINE [Concomitant]
     Active Substance: FLUOXETINE HYDROCHLORIDE
     Dates: start: 2014

REACTIONS (3)
  - Depression [Not Recovered/Not Resolved]
  - Anxiety [Not Recovered/Not Resolved]
  - Withdrawal syndrome [Unknown]

NARRATIVE: CASE EVENT DATE: 201807
